FAERS Safety Report 17115075 (Version 1)
Quarter: 2019Q4

REPORT INFORMATION
  Report Type: Spontaneous
  Country: US (occurrence: US)
  Receive Date: 20191205
  Receipt Date: 20191205
  Transmission Date: 20200122
  Serious: No
  Sender: FDA-Public Use
  Company Number: US-GW PHARMA-201910USGW3747

PATIENT

DRUGS (12)
  1. EVEROLIMUS. [Interacting]
     Active Substance: EVEROLIMUS
     Indication: PRODUCT USED FOR UNKNOWN INDICATION
     Dosage: 10MG(MAINTANENCE MORE THAN 1 YEAR) (MTOR INHIBITOR)
     Route: 065
     Dates: end: 2019
  2. EVEROLIMUS. [Interacting]
     Active Substance: EVEROLIMUS
     Dosage: 2.5 MG (MTOR INHIBITOR)
     Route: 065
     Dates: start: 2019
  3. EPIDIOLEX [Interacting]
     Active Substance: CANNABIDIOL
     Dosage: 5 MG/KG/DAY
     Route: 048
     Dates: start: 2019, end: 20190520
  4. EVEROLIMUS. [Interacting]
     Active Substance: EVEROLIMUS
     Dosage: 5 MG (MTOR INHIBITOR)
     Route: 065
     Dates: start: 2019, end: 2019
  5. EPIDIOLEX [Interacting]
     Active Substance: CANNABIDIOL
     Dosage: 5 MG/KG/DAY
     Route: 048
     Dates: start: 20190521, end: 20190916
  6. EVEROLIMUS. [Interacting]
     Active Substance: EVEROLIMUS
     Dosage: 7.5 MG (MTOR INHIBITOR)
     Route: 065
     Dates: start: 2019, end: 2019
  7. RAPAMYCIN [Interacting]
     Active Substance: SIROLIMUS
     Indication: PRODUCT USED FOR UNKNOWN INDICATION
     Dosage: 2MG (MTOR INHIBITOR)
     Route: 065
  8. LAMOTRIGINE. [Concomitant]
     Active Substance: LAMOTRIGINE
     Indication: PRODUCT USED FOR UNKNOWN INDICATION
     Dosage: UNK
     Route: 065
  9. LOSTATIN [Concomitant]
     Indication: PRODUCT USED FOR UNKNOWN INDICATION
     Dosage: UNK
     Route: 065
  10. EPIDIOLEX [Suspect]
     Active Substance: CANNABIDIOL
     Indication: EPILEPSY
     Dosage: 5 MG/KG/DAY
     Route: 048
     Dates: start: 20190115, end: 20190304
  11. EPIDIOLEX [Interacting]
     Active Substance: CANNABIDIOL
     Dosage: 10 MG/KG/DAY
     Route: 048
     Dates: start: 20190305, end: 2019
  12. EPIDIOLEX [Interacting]
     Active Substance: CANNABIDIOL
     Dosage: 5 MG/KG/DAY
     Route: 048
     Dates: start: 20190917

REACTIONS (2)
  - Drug interaction [Recovered/Resolved]
  - Seizure [Recovered/Resolved]

NARRATIVE: CASE EVENT DATE: 2019
